FAERS Safety Report 8044303-0 (Version None)
Quarter: 2012Q1

REPORT INFORMATION
  Report Type: 
  Country: None (occurrence: None)
  Receive Date: 20120113
  Receipt Date: 20111230
  Transmission Date: 20120608
  Serious: Yes (Other)
  Sender: FDA-Public Use
  Company Number: FR-UCBSA-043021

PATIENT
  Age: 65 Year
  Sex: Male

DRUGS (6)
  1. CIMZIA [Suspect]
     Indication: ANKYLOSING SPONDYLITIS
     Route: 058
     Dates: start: 20110627, end: 20110801
  2. CIMZIA [Suspect]
     Route: 058
     Dates: start: 20110530, end: 20110613
  3. CIMZIA [Suspect]
     Indication: ENTEROCOLITIS HAEMORRHAGIC
     Route: 058
     Dates: start: 20110627, end: 20110801
  4. PENTASA [Concomitant]
     Indication: COLITIS ULCERATIVE
     Route: 048
     Dates: start: 19990101
  5. CIMZIA [Suspect]
     Route: 058
     Dates: start: 20110530, end: 20110613
  6. PREDNISONE TAB [Concomitant]
     Indication: ANKYLOSING SPONDYLITIS
     Route: 048
     Dates: start: 19990101

REACTIONS (2)
  - DERMATITIS ALLERGIC [None]
  - INCORRECT DOSE ADMINISTERED [None]
